FAERS Safety Report 7671976-4 (Version None)
Quarter: 2011Q3

REPORT INFORMATION
  Report Type: 
  Country: None (occurrence: None)
  Receive Date: 20110809
  Receipt Date: 20110727
  Transmission Date: 20111222
  Serious: Yes (Hospitalization)
  Sender: FDA-Public Use
  Company Number: GB-GLAXOSMITHKLINE-B0737822A

PATIENT
  Sex: Female

DRUGS (10)
  1. BENDROFLUAZIDE [Concomitant]
     Dates: start: 19980101
  2. CHLORAMBUCIL [Suspect]
     Indication: CHRONIC LYMPHOCYTIC LEUKAEMIA
     Dosage: 18MG CYCLIC
     Route: 048
     Dates: start: 20080701
  3. LISINOPRIL [Concomitant]
     Dates: start: 19960101
  4. LANTUS [Concomitant]
     Dates: start: 20050101
  5. AMLODIPINE [Concomitant]
     Dates: start: 19960101
  6. NOVORAPID [Concomitant]
     Dates: start: 20050101
  7. PINE BARK [Concomitant]
  8. MABTHERA [Suspect]
     Indication: CHRONIC LYMPHOCYTIC LEUKAEMIA
     Dosage: 890MG MONTHLY
     Route: 042
     Dates: start: 20080701
  9. PRAVASTATIN SODIUM [Concomitant]
     Dates: start: 20040101
  10. LANSOPRAZOLE [Concomitant]

REACTIONS (1)
  - PNEUMONIA [None]
